FAERS Safety Report 16315550 (Version 2)
Quarter: 2019Q2

REPORT INFORMATION
  Report Type: Spontaneous
  Country: US (occurrence: US)
  Receive Date: 20190515
  Receipt Date: 20190607
  Transmission Date: 20190711
  Serious: No
  Sender: FDA-Public Use
  Company Number: US-TAKEDA-2019TUS029215

PATIENT
  Sex: Female
  Weight: 65.76 kg

DRUGS (2)
  1. ENTYVIO [Suspect]
     Active Substance: VEDOLIZUMAB
     Indication: CROHN^S DISEASE
     Dosage: 300 MILLIGRAM
     Route: 042
     Dates: start: 20181226
  2. BENTYL [Concomitant]
     Active Substance: DICYCLOMINE HYDROCHLORIDE
     Indication: PAIN
     Dosage: UNK
     Dates: start: 20181226

REACTIONS (4)
  - Weight decreased [Not Recovered/Not Resolved]
  - Amnesia [Recovered/Resolved]
  - Drug ineffective [Unknown]
  - Confusional state [Recovered/Resolved]
